FAERS Safety Report 6377645-5 (Version None)
Quarter: 2009Q3

REPORT INFORMATION
  Report Type: 
  Country: None (occurrence: None)
  Receive Date: 20090925
  Receipt Date: 20090908
  Transmission Date: 20100115
  Serious: Yes (Hospitalization)
  Sender: FDA-Public Use
  Company Number: CHNY2009AU02758

PATIENT
  Sex: Male

DRUGS (5)
  1. NICOTINELL GUM (NCH) [Suspect]
     Dosage: 4 MG, UNK
  2. NICOTINELL GUM (NCH) [Suspect]
     Dosage: HALF A 4 MG GUM, AVERAGE OF 27 GUMS DAILY
  3. NICOTINELL GUM (NCH) [Suspect]
     Indication: SMOKING CESSATION THERAPY
     Dosage: 2 MG, UNK
  4. ALL OTHER THERAPEUTIC PRODUCTS [Concomitant]
     Indication: BLOOD PRESSURE ABNORMAL
  5. ALL OTHER THERAPEUTIC PRODUCTS [Concomitant]
     Indication: BLOOD CHOLESTEROL ABNORMAL
     Dosage: UNK

REACTIONS (17)
  - ABDOMINAL DISCOMFORT [None]
  - CAROTID ARTERY THROMBOSIS [None]
  - CEREBRAL HAEMORRHAGE [None]
  - CEREBRAL INFARCTION [None]
  - CEREBRAL ISCHAEMIA [None]
  - CEREBROVASCULAR ACCIDENT [None]
  - CLAUSTROPHOBIA [None]
  - DYSARTHRIA [None]
  - FAECAL INCONTINENCE [None]
  - FALL [None]
  - HYPOKINESIA [None]
  - INTENTIONAL DRUG MISUSE [None]
  - NASOPHARYNGITIS [None]
  - NAUSEA [None]
  - OVERDOSE [None]
  - VISUAL FIELD DEFECT [None]
  - WRONG TECHNIQUE IN DRUG USAGE PROCESS [None]
